FAERS Safety Report 7209652-4 (Version None)
Quarter: 2011Q1

REPORT INFORMATION
  Report Type: 
  Country: None (occurrence: None)
  Receive Date: 20110104
  Receipt Date: 20101229
  Transmission Date: 20110831
  Serious: Yes (Other)
  Sender: FDA-Public Use
  Company Number: US-AMGEN-USASP2010012229

PATIENT

DRUGS (1)
  1. ENBREL [Suspect]
     Indication: PSORIATIC ARTHROPATHY
     Dates: start: 20070201

REACTIONS (4)
  - NASOPHARYNGITIS [None]
  - HEADACHE [None]
  - SINUSITIS [None]
  - HAEMATOCHEZIA [None]
